FAERS Safety Report 20382915 (Version 1)
Quarter: 2022Q1

REPORT INFORMATION
  Report Type: Spontaneous
  Country: AR (occurrence: AR)
  Receive Date: 20220127
  Receipt Date: 20220127
  Transmission Date: 20220423
  Serious: Yes (Other)
  Sender: FDA-Public Use
  Company Number: AR-PFIZER INC-2021619349

PATIENT
  Age: 64 Year
  Sex: Male

DRUGS (1)
  1. SUTENT [Suspect]
     Active Substance: SUNITINIB MALATE
     Indication: Metastatic renal cell carcinoma
     Dosage: 50 MG, 1X/DAY
     Dates: start: 20200823

REACTIONS (6)
  - Diabetes mellitus [Unknown]
  - Ageusia [Unknown]
  - Decreased appetite [Unknown]
  - Abdominal discomfort [Not Recovered/Not Resolved]
  - Prostatitis [Unknown]
  - Product use issue [Unknown]

NARRATIVE: CASE EVENT DATE: 20200823
